FAERS Safety Report 7311528-9 (Version None)
Quarter: 2011Q1

REPORT INFORMATION
  Report Type: 
  Country: None (occurrence: None)
  Receive Date: 20110224
  Receipt Date: 20101215
  Transmission Date: 20110831
  Serious: No
  Sender: FDA-Public Use
  Company Number: A0899932A

PATIENT
  Age: 86 Year
  Sex: Male

DRUGS (2)
  1. ARZERRA [Suspect]
     Dosage: 2000MG MONTHLY
     Route: 042
  2. NO CONCURRENT MEDICATION [Concomitant]

REACTIONS (1)
  - CONTUSION [None]
